FAERS Safety Report 10374702 (Version 1)
Quarter: 2014Q3

REPORT INFORMATION
  Report Type: Spontaneous
  Country: US (occurrence: None)
  Receive Date: 20140808
  Receipt Date: 20140808
  Transmission Date: 20150326
  Serious: Yes (Other)
  Sender: FDA-Public Use
  Company Number: None

PATIENT
  Age: 87 Year
  Sex: Male

DRUGS (1)
  1. REVLIMID [Suspect]
     Active Substance: LENALIDOMIDE
     Indication: PLASMA CELL MYELOMA
     Dosage: REVLIMID 25 MG?DAILY X21D/28D?ORALLY
     Route: 048
     Dates: start: 201201, end: 201207

REACTIONS (3)
  - Swelling [None]
  - Diarrhoea [None]
  - Rash [None]

NARRATIVE: CASE EVENT DATE: 20140729
